FAERS Safety Report 14569309 (Version 2)
Quarter: 2018Q1

REPORT INFORMATION
  Report Type: Report from Study
  Country: US (occurrence: US)
  Receive Date: 20180223
  Receipt Date: 20180302
  Transmission Date: 20180509
  Serious: Yes (Other)
  Sender: FDA-Public Use
  Company Number: US-GILEAD-2018-0321058

PATIENT
  Age: 70 Year
  Sex: Female

DRUGS (2)
  1. RANOLAZINE. [Suspect]
     Active Substance: RANOLAZINE
     Indication: ANGINA PECTORIS
     Dosage: 500 MG, UNK
     Route: 048
     Dates: start: 20180209
  2. RANOLAZINE. [Suspect]
     Active Substance: RANOLAZINE
     Dosage: 500 MG, UNK
     Route: 048

REACTIONS (8)
  - Anxiety [Recovered/Resolved]
  - Restlessness [Recovering/Resolving]
  - Headache [Recovering/Resolving]
  - Wrong technique in product usage process [Unknown]
  - Cardiac operation [Unknown]
  - Malaise [Recovering/Resolving]
  - Nausea [Recovering/Resolving]
  - Intentional dose omission [Recovered/Resolved]

NARRATIVE: CASE EVENT DATE: 20180212
